FAERS Safety Report 16747764 (Version 1)
Quarter: 2019Q3

REPORT INFORMATION
  Report Type: Spontaneous
  Country: BR (occurrence: BR)
  Receive Date: 20190827
  Receipt Date: 20190827
  Transmission Date: 20191005
  Serious: Yes (Other)
  Sender: FDA-Public Use
  Company Number: PHHY2019BR197844

PATIENT
  Age: 30 Year
  Sex: Male

DRUGS (2)
  1. PROPRANOLOL [Suspect]
     Active Substance: PROPRANOLOL HYDROCHLORIDE
     Indication: BASEDOW^S DISEASE
     Dosage: 320 MG, QD
     Route: 065
     Dates: start: 201604
  2. PREDNISONE. [Suspect]
     Active Substance: PREDNISONE
     Indication: BASEDOW^S DISEASE
     Dosage: 20 MG, QD
     Route: 065
     Dates: start: 201604

REACTIONS (2)
  - Product use in unapproved indication [Unknown]
  - Hyperthyroidism [Unknown]
